FAERS Safety Report 4523850-X (Version None)
Quarter: 2004Q4

REPORT INFORMATION
  Report Type: 
  Country: None (occurrence: None)
  Receive Date: 20041029
  Receipt Date: 20040928
  Transmission Date: 20050328
  Serious: No
  Sender: FDA-Public Use
  Company Number: 200417421US

PATIENT
  Sex: Female

DRUGS (3)
  1. KETEK [Suspect]
  2. ALLEGRA [Concomitant]
  3. NASAL STEROID [Concomitant]

REACTIONS (1)
  - FEELING HOT [None]
